FAERS Safety Report 6681850-8 (Version None)
Quarter: 2010Q2

REPORT INFORMATION
  Report Type: 
  Country: None (occurrence: None)
  Receive Date: 20100414
  Receipt Date: 20100301
  Transmission Date: 20101027
  Serious: Yes (Death, Hospitalization, Other)
  Sender: FDA-Public Use
  Company Number: US-BAXTER-2008BH011002

PATIENT
  Age: 58 Year
  Sex: Male
  Weight: 63 kg

DRUGS (101)
  1. HEPARIN SODIUM INJECTION [Suspect]
     Indication: THROMBOSIS PROPHYLAXIS
     Route: 042
     Dates: start: 20070901, end: 20080301
  2. HEPARIN SODIUM INJECTION [Suspect]
     Indication: INTRAVENOUS CATHETER MANAGEMENT
     Route: 042
     Dates: start: 20070901, end: 20080301
  3. HEPARIN SODIUM INJECTION [Suspect]
     Route: 042
     Dates: start: 20070901, end: 20080301
  4. HEPARIN SODIUM INJECTION [Suspect]
     Route: 058
     Dates: start: 20080405, end: 20080412
  5. HEPARIN SODIUM INJECTION [Suspect]
     Route: 058
     Dates: start: 20080405, end: 20080412
  6. HEPARIN SODIUM INJECTION [Suspect]
     Route: 058
     Dates: start: 20080405, end: 20080412
  7. HEPARIN SODIUM INJECTION [Suspect]
     Route: 042
     Dates: start: 20070213, end: 20070213
  8. HEPARIN SODIUM INJECTION [Suspect]
     Route: 042
     Dates: start: 20070213, end: 20070213
  9. HEPARIN SODIUM INJECTION [Suspect]
     Route: 042
     Dates: start: 20070213, end: 20070213
  10. HEPARIN SODIUM INJECTION [Suspect]
     Route: 040
     Dates: start: 20070917, end: 20071005
  11. HEPARIN SODIUM INJECTION [Suspect]
     Route: 040
     Dates: start: 20070917, end: 20071005
  12. HEPARIN SODIUM INJECTION [Suspect]
     Route: 040
     Dates: start: 20070917, end: 20071005
  13. HEPARIN SODIUM INJECTION [Suspect]
     Route: 065
     Dates: start: 20080424, end: 20080428
  14. HEPARIN SODIUM INJECTION [Suspect]
     Route: 065
     Dates: start: 20080424, end: 20080428
  15. HEPARIN SODIUM INJECTION [Suspect]
     Route: 065
     Dates: start: 20080424, end: 20080428
  16. HEPARIN SODIUM INJECTION [Suspect]
     Route: 033
     Dates: start: 20070303, end: 20070303
  17. HEPARIN SODIUM INJECTION [Suspect]
     Route: 033
     Dates: start: 20070303, end: 20070303
  18. HEPARIN SODIUM INJECTION [Suspect]
     Route: 033
     Dates: start: 20070303, end: 20070303
  19. HEPARIN SODIUM INJECTION [Suspect]
     Route: 040
     Dates: start: 20071011, end: 20071124
  20. HEPARIN SODIUM INJECTION [Suspect]
     Route: 040
     Dates: start: 20071011, end: 20071124
  21. HEPARIN SODIUM INJECTION [Suspect]
     Route: 040
     Dates: start: 20071011, end: 20071124
  22. HEPARIN SODIUM INJECTION [Suspect]
     Route: 033
     Dates: start: 20070305, end: 20070305
  23. HEPARIN SODIUM INJECTION [Suspect]
     Route: 033
     Dates: start: 20070305, end: 20070305
  24. HEPARIN SODIUM INJECTION [Suspect]
     Route: 033
     Dates: start: 20070305, end: 20070305
  25. HEPARIN SODIUM INJECTION [Suspect]
     Route: 040
     Dates: start: 20071127, end: 20080325
  26. HEPARIN SODIUM INJECTION [Suspect]
     Route: 040
     Dates: start: 20071127, end: 20080325
  27. HEPARIN SODIUM INJECTION [Suspect]
     Route: 040
     Dates: start: 20071127, end: 20080325
  28. HEPARIN SODIUM INJECTION [Suspect]
     Route: 065
     Dates: start: 20080122
  29. HEPARIN SODIUM INJECTION [Suspect]
     Route: 065
     Dates: start: 20080122
  30. HEPARIN SODIUM INJECTION [Suspect]
     Route: 065
     Dates: start: 20080122
  31. HEPARIN SODIUM INJECTION [Suspect]
     Route: 042
     Dates: start: 20071015
  32. HEPARIN SODIUM INJECTION [Suspect]
     Route: 042
     Dates: start: 20071015
  33. HEPARIN SODIUM INJECTION [Suspect]
     Route: 042
     Dates: start: 20071015
  34. HEPARIN SODIUM INJECTION [Suspect]
     Route: 058
     Dates: start: 20080404, end: 20080412
  35. HEPARIN SODIUM INJECTION [Suspect]
     Route: 058
     Dates: start: 20080404, end: 20080412
  36. HEPARIN SODIUM INJECTION [Suspect]
     Route: 058
     Dates: start: 20080404, end: 20080412
  37. HEPARIN SODIUM INJECTION [Suspect]
     Route: 042
     Dates: start: 20071018
  38. HEPARIN SODIUM INJECTION [Suspect]
     Route: 042
     Dates: start: 20071018
  39. HEPARIN SODIUM INJECTION [Suspect]
     Route: 042
     Dates: start: 20071018
  40. HEPARIN SODIUM INJECTION [Suspect]
     Route: 010
     Dates: start: 20080404, end: 20080404
  41. HEPARIN SODIUM INJECTION [Suspect]
     Route: 010
     Dates: start: 20080404, end: 20080404
  42. HEPARIN SODIUM INJECTION [Suspect]
     Route: 010
     Dates: start: 20080404, end: 20080404
  43. HEPARIN SODIUM INJECTION [Suspect]
     Route: 042
     Dates: start: 20071121
  44. HEPARIN SODIUM INJECTION [Suspect]
     Route: 042
     Dates: start: 20071121
  45. HEPARIN SODIUM INJECTION [Suspect]
     Route: 042
     Dates: start: 20071121
  46. HEPARIN SODIUM INJECTION [Suspect]
     Route: 010
     Dates: start: 20080408, end: 20080408
  47. HEPARIN SODIUM INJECTION [Suspect]
     Route: 010
     Dates: start: 20080408, end: 20080408
  48. HEPARIN SODIUM INJECTION [Suspect]
     Route: 010
     Dates: start: 20080408, end: 20080408
  49. HEPARIN SODIUM INJECTION [Suspect]
     Route: 042
     Dates: start: 20071123
  50. HEPARIN SODIUM INJECTION [Suspect]
     Route: 042
     Dates: start: 20071123
  51. HEPARIN SODIUM INJECTION [Suspect]
     Route: 042
     Dates: start: 20071123
  52. HEPARIN SODIUM INJECTION [Suspect]
     Route: 010
     Dates: start: 20080410, end: 20080410
  53. HEPARIN SODIUM INJECTION [Suspect]
     Route: 010
     Dates: start: 20080410, end: 20080410
  54. HEPARIN SODIUM INJECTION [Suspect]
     Route: 010
     Dates: start: 20080410, end: 20080410
  55. HEPARIN SODIUM INJECTION [Suspect]
     Route: 042
     Dates: start: 20080223
  56. HEPARIN SODIUM INJECTION [Suspect]
     Route: 042
     Dates: start: 20080223
  57. HEPARIN SODIUM INJECTION [Suspect]
     Route: 042
     Dates: start: 20080223
  58. HEPARIN SODIUM INJECTION [Suspect]
     Route: 058
     Dates: start: 20080424
  59. HEPARIN SODIUM INJECTION [Suspect]
     Route: 058
     Dates: start: 20080424
  60. HEPARIN SODIUM INJECTION [Suspect]
     Route: 058
     Dates: start: 20080424
  61. HEPARIN SODIUM INJECTION [Suspect]
     Route: 040
     Dates: start: 20080823, end: 20080826
  62. HEPARIN SODIUM INJECTION [Suspect]
     Route: 040
     Dates: start: 20080823, end: 20080826
  63. HEPARIN SODIUM INJECTION [Suspect]
     Route: 040
     Dates: start: 20080823, end: 20080826
  64. HEPARIN SODIUM INJECTION [Suspect]
     Route: 041
     Dates: start: 20080823, end: 20080826
  65. HEPARIN SODIUM INJECTION [Suspect]
     Route: 041
     Dates: start: 20080823, end: 20080826
  66. HEPARIN SODIUM INJECTION [Suspect]
     Route: 041
     Dates: start: 20080823, end: 20080826
  67. HEPARIN SODIUM INJECTION [Suspect]
     Route: 058
     Dates: start: 20080824, end: 20080825
  68. HEPARIN SODIUM INJECTION [Suspect]
     Route: 058
     Dates: start: 20080824, end: 20080825
  69. HEPARIN SODIUM INJECTION [Suspect]
     Route: 058
     Dates: start: 20080824, end: 20080825
  70. HEPARIN SODIUM INJECTION [Suspect]
     Route: 065
     Dates: end: 20080829
  71. HEPARIN SODIUM INJECTION [Suspect]
     Route: 065
     Dates: end: 20080829
  72. HEPARIN SODIUM INJECTION [Suspect]
     Route: 065
     Dates: end: 20080829
  73. ARANESP [Concomitant]
     Indication: DRUG USE FOR UNKNOWN INDICATION
     Route: 058
  74. ZINC [Concomitant]
     Indication: DRUG USE FOR UNKNOWN INDICATION
     Route: 048
  75. AMLODIPINE [Concomitant]
     Indication: DRUG USE FOR UNKNOWN INDICATION
     Route: 048
  76. TOPROL-XL [Concomitant]
     Indication: DRUG USE FOR UNKNOWN INDICATION
     Route: 048
  77. HYDROCHLOROTHIAZIDE [Concomitant]
     Indication: DRUG USE FOR UNKNOWN INDICATION
     Route: 048
  78. ASPIRIN [Concomitant]
     Indication: DRUG USE FOR UNKNOWN INDICATION
     Route: 048
  79. MIRALAX [Concomitant]
     Indication: DRUG USE FOR UNKNOWN INDICATION
     Route: 048
  80. GENTAMYCIN-MP [Concomitant]
     Indication: DRUG USE FOR UNKNOWN INDICATION
     Route: 061
  81. RENAGEL [Concomitant]
     Indication: DRUG USE FOR UNKNOWN INDICATION
     Route: 048
  82. FOSINOPRIL SODIUM [Concomitant]
     Indication: DRUG USE FOR UNKNOWN INDICATION
     Route: 048
  83. VENOFER [Concomitant]
     Indication: DRUG USE FOR UNKNOWN INDICATION
     Route: 042
  84. CARNITOR [Concomitant]
     Indication: DRUG USE FOR UNKNOWN INDICATION
     Route: 042
  85. ZANTAC [Concomitant]
     Indication: DRUG USE FOR UNKNOWN INDICATION
     Route: 048
  86. DEMADEX [Concomitant]
     Indication: DRUG USE FOR UNKNOWN INDICATION
     Route: 048
  87. LISINOPRIL [Concomitant]
     Indication: DRUG USE FOR UNKNOWN INDICATION
     Route: 048
  88. AMARYL [Concomitant]
     Indication: DRUG USE FOR UNKNOWN INDICATION
     Route: 048
  89. ISORDIL [Concomitant]
     Indication: DRUG USE FOR UNKNOWN INDICATION
     Route: 048
  90. METOPROLOL TARTRATE [Concomitant]
     Indication: DRUG USE FOR UNKNOWN INDICATION
     Route: 048
  91. AMOXIL SODIUM [Concomitant]
     Indication: DRUG USE FOR UNKNOWN INDICATION
     Route: 048
  92. MONOPRIL [Concomitant]
     Indication: DRUG USE FOR UNKNOWN INDICATION
     Route: 048
  93. LEXAPRO [Concomitant]
     Indication: DRUG USE FOR UNKNOWN INDICATION
     Route: 048
  94. SYNTHROID [Concomitant]
     Indication: DRUG USE FOR UNKNOWN INDICATION
     Route: 048
  95. FOLIC ACID [Concomitant]
     Indication: DRUG USE FOR UNKNOWN INDICATION
     Route: 048
  96. CLONIDINE [Concomitant]
     Indication: DRUG USE FOR UNKNOWN INDICATION
     Route: 048
  97. LASIX [Concomitant]
     Indication: DRUG USE FOR UNKNOWN INDICATION
     Route: 048
  98. FERRLECIT                               /USA/ [Concomitant]
     Indication: DRUG USE FOR UNKNOWN INDICATION
     Route: 042
  99. PLAVIX [Concomitant]
     Indication: DRUG USE FOR UNKNOWN INDICATION
     Route: 048
  100. ZEMPLAR [Concomitant]
     Indication: DRUG USE FOR UNKNOWN INDICATION
     Route: 042
  101. RITALIN [Concomitant]
     Indication: DRUG USE FOR UNKNOWN INDICATION
     Route: 048

REACTIONS (34)
  - ABDOMINAL ABSCESS [None]
  - ABDOMINAL PAIN [None]
  - ACUTE MYOCARDIAL INFARCTION [None]
  - ANAEMIA [None]
  - AORTIC STENOSIS [None]
  - AORTIC VALVE DISEASE [None]
  - ASCITES [None]
  - ASTHENIA [None]
  - BACK PAIN [None]
  - BRADYCARDIA [None]
  - CARDIAC ARREST [None]
  - CARDIAC FAILURE CONGESTIVE [None]
  - CHRONIC OBSTRUCTIVE PULMONARY DISEASE [None]
  - CORONARY ARTERY DISEASE [None]
  - DECREASED APPETITE [None]
  - DIABETES MELLITUS [None]
  - DYSPNOEA [None]
  - FALL [None]
  - GASTROINTESTINAL HAEMORRHAGE [None]
  - HYPERKALAEMIA [None]
  - HYPERTENSION [None]
  - HYPOTENSION [None]
  - LACTIC ACIDOSIS [None]
  - MITRAL VALVE DISEASE [None]
  - MUSCLE SPASMS [None]
  - PNEUMONIA [None]
  - PULMONARY OEDEMA [None]
  - PYREXIA [None]
  - RENAL FAILURE [None]
  - RENAL FAILURE CHRONIC [None]
  - RESPIRATORY FAILURE [None]
  - SEPSIS [None]
  - STAPHYLOCOCCAL BACTERAEMIA [None]
  - THROMBOCYTOPENIA [None]
